FAERS Safety Report 10363468 (Version 1)
Quarter: 2014Q3

REPORT INFORMATION
  Report Type: Spontaneous
  Country: JP (occurrence: JP)
  Receive Date: 20140805
  Receipt Date: 20140805
  Transmission Date: 20150326
  Serious: Yes (Other)
  Sender: FDA-Public Use
  Company Number: JP-GLAXOSMITHKLINE-B1010993A

PATIENT
  Sex: Male

DRUGS (1)
  1. ARRANON [Suspect]
     Active Substance: NELARABINE
     Indication: PRODUCT USED FOR UNKNOWN INDICATION
     Dosage: 1500MGM2 PER DAY
     Route: 042
     Dates: start: 20140616

REACTIONS (2)
  - Myositis [Unknown]
  - Rhabdomyolysis [Recovering/Resolving]
